FAERS Safety Report 8582087-8 (Version None)
Quarter: 2012Q3

REPORT INFORMATION
  Report Type: 
  Country: None (occurrence: None)
  Receive Date: 20120727
  Receipt Date: 20120719
  Transmission Date: 20120928
  Serious: Yes (Other)
  Sender: FDA-Public Use
  Company Number: DSA_58616_2012

PATIENT
  Age: 36 Year
  Sex: Male

DRUGS (2)
  1. BECONASE AQUEOUS NASAL SPRAY [Concomitant]
  2. FLAGYL [Suspect]
     Indication: PRODUCT USED FOR UNKNOWN INDICATION
     Dosage: (DF)
     Dates: start: 20120501

REACTIONS (3)
  - TINNITUS [None]
  - OPTIC NEURITIS [None]
  - PSYCHOTIC DISORDER [None]
